FAERS Safety Report 10506647 (Version 1)
Quarter: 2014Q3

REPORT INFORMATION
  Report Type: Spontaneous
  Country: US (occurrence: None)
  Receive Date: 20140915
  Receipt Date: 20140915
  Transmission Date: 20150326
  Serious: Yes (Hospitalization, Other)
  Sender: FDA-Public Use
  Company Number: 2013-US-003286

PATIENT
  Age: 30 Year
  Sex: Female
  Weight: 116.1 kg

DRUGS (5)
  1. XYREM [Suspect]
     Active Substance: SODIUM OXYBATE
     Indication: NARCOLEPSY
     Route: 048
     Dates: start: 201209, end: 20131108
  2. LITHIUM (LITHIUM CARBONATE) [Concomitant]
  3. XYREM [Suspect]
     Active Substance: SODIUM OXYBATE
     Indication: CATAPLEXY
     Route: 048
     Dates: start: 201209, end: 20131108
  4. PROZAC [Concomitant]
     Active Substance: FLUOXETINE HYDROCHLORIDE
  5. PROVIGIL [Concomitant]
     Active Substance: MODAFINIL

REACTIONS (4)
  - Psychotic disorder [None]
  - Confusional state [None]
  - Paranoia [None]
  - Hallucination [None]

NARRATIVE: CASE EVENT DATE: 20131030
